FAERS Safety Report 10617826 (Version 1)
Quarter: 2014Q4

REPORT INFORMATION
  Report Type: Spontaneous
  Country: CN (occurrence: CN)
  Receive Date: 20141201
  Receipt Date: 20141201
  Transmission Date: 20150529
  Serious: Yes (Other)
  Sender: FDA-Public Use
  Company Number: CN-BAYER-2014-175347

PATIENT
  Age: 35 Year
  Sex: Female

DRUGS (2)
  1. PREDNISONE. [Suspect]
     Active Substance: PREDNISONE
     Indication: FOETAL DEATH
     Dosage: 5 MG/DAY
     Route: 048
  2. ACETYLSALICYLIC ACID({=100 MG) [Suspect]
     Active Substance: ASPIRIN
     Indication: FOETAL DEATH
     Dosage: 50 MG/DAY
     Route: 048

REACTIONS (2)
  - Exposure during pregnancy [None]
  - Abortion spontaneous [None]
